FAERS Safety Report 23539655 (Version 2)
Quarter: 2024Q1

REPORT INFORMATION
  Report Type: Spontaneous
  Country: NL (occurrence: NL)
  Receive Date: 20240219
  Receipt Date: 20240304
  Transmission Date: 20240410
  Serious: Yes (Hospitalization, Other)
  Sender: FDA-Public Use
  Company Number: None

PATIENT
  Age: 74 Year
  Sex: Male
  Weight: 76 kg

DRUGS (3)
  1. CIPROFLOXACIN [Suspect]
     Active Substance: CIPROFLOXACIN
     Indication: Pseudomonas infection
     Dosage: 500 MILLIGRAM, BID (2 TIMES PER DAY)
     Route: 065
     Dates: start: 20210724, end: 20210728
  2. CEFTAZIDIME [Suspect]
     Active Substance: CEFTAZIDIME
     Indication: Pseudomonas infection
     Dosage: 1 DOSAGE FORM (6 DAYS PER INFUSION 3X1 GRAM/DAY (I BELIEVE))
     Route: 065
     Dates: start: 20210728
  3. PFIZER-BIONTECH COVID-19 VACCINE [Concomitant]
     Active Substance: TOZINAMERAN
     Indication: COVID-19 immunisation
     Dosage: 1 DOSAGE FORM (INJECTION FLUID)
     Route: 065
     Dates: start: 20210526

REACTIONS (6)
  - Peripheral swelling [Recovered/Resolved]
  - Chest pain [Recovering/Resolving]
  - Arthralgia [Recovering/Resolving]
  - Pain in extremity [Recovered/Resolved]
  - Neuropathy peripheral [Recovering/Resolving]
  - Musculoskeletal stiffness [Recovering/Resolving]
